FAERS Safety Report 17881422 (Version 1)
Quarter: 2020Q2

REPORT INFORMATION
  Report Type: Spontaneous
  Country: US (occurrence: US)
  Receive Date: 20200610
  Receipt Date: 20200610
  Transmission Date: 20200714
  Serious: No
  Sender: FDA-Public Use
  Company Number: US-COLLEGIUM PHARMACEUTICAL, INC.-2019CGM00152

PATIENT
  Age: 67 Year
  Sex: Male
  Weight: 94.33 kg

DRUGS (1)
  1. XTAMPZA ER [Suspect]
     Active Substance: OXYCODONE
     Indication: PAIN
     Dosage: 27 MG, EVERY 12 HOURS WITH FOOD
     Route: 048
     Dates: start: 20190517, end: 20190528

REACTIONS (6)
  - Injury [Recovered/Resolved]
  - Therapeutic product effect incomplete [Recovered/Resolved]
  - Anxiety [Unknown]
  - Insomnia [Recovered/Resolved]
  - Product substitution issue [Recovered/Resolved]
  - Diarrhoea [Recovered/Resolved]

NARRATIVE: CASE EVENT DATE: 201905
